FAERS Safety Report 5285467-1 (Version None)
Quarter: 2007Q1

REPORT INFORMATION
  Report Type: 
  Country: None (occurrence: None)
  Receive Date: 20070328
  Receipt Date: 20070320
  Transmission Date: 20070707
  Serious: Yes (Death, Life-Threatening)
  Sender: FDA-Public Use
  Company Number: 430014E06ITA

PATIENT
  Age: 62 Year
  Sex: Male

DRUGS (4)
  1. NOVANTRONE [Suspect]
     Dosage: 13 MG, UNKNOWN
     Dates: start: 20061107, end: 20061111
  2. CYTARABINE [Suspect]
     Dosage: 200 MG, 1 IN 1 DAYS, UNKNOWN
     Dates: start: 20061107, end: 20061113
  3. ETOPOSIDE [Suspect]
     Dosage: 200 MG, 1 IN 1 DAYS, UNKNOWN
     Dates: start: 20061107, end: 20061109
  4. LEVOFLOXACIN [Concomitant]

REACTIONS (3)
  - PNEUMONIA [None]
  - PSEUDOMONAS INFECTION [None]
  - SEPTIC SHOCK [None]
